FAERS Safety Report 6789076-4 (Version None)
Quarter: 2010Q2

REPORT INFORMATION
  Report Type: 
  Country: None (occurrence: None)
  Receive Date: 20100623
  Receipt Date: 20080827
  Transmission Date: 20101027
  Serious: No
  Sender: FDA-Public Use
  Company Number: US-PFIZER INC-2008036161

PATIENT
  Sex: Female
  Weight: 70 kg

DRUGS (7)
  1. GENOTROPIN [Suspect]
     Indication: HYPOPITUITARISM
     Dates: start: 20061030
  2. SYNTHROID [Concomitant]
  3. PREVACID [Concomitant]
  4. TOPAMAX [Concomitant]
     Indication: MIGRAINE PROPHYLAXIS
  5. VERAPAMIL [Concomitant]
     Indication: MIGRAINE PROPHYLAXIS
  6. CLONAZEPAM [Concomitant]
  7. ZOLOFT [Concomitant]

REACTIONS (14)
  - ASTHENIA [None]
  - BLOOD GLUCOSE ABNORMAL [None]
  - CHEST DISCOMFORT [None]
  - CONSTIPATION [None]
  - DECREASED APPETITE [None]
  - DEPRESSION [None]
  - FATIGUE [None]
  - HEADACHE [None]
  - HOT FLUSH [None]
  - INCORRECT STORAGE OF DRUG [None]
  - INSOMNIA [None]
  - MALAISE [None]
  - MOOD ALTERED [None]
  - PALPITATIONS [None]
